FAERS Safety Report 4321231-5 (Version None)
Quarter: 2004Q1

REPORT INFORMATION
  Report Type: 
  Country: None (occurrence: None)
  Receive Date: 20040322
  Receipt Date: 20040322
  Transmission Date: 20041129
  Serious: No
  Sender: FDA-Public Use
  Company Number: None

PATIENT
  Age: 34 Year
  Sex: Female
  Weight: 47.6277 kg

DRUGS (1)
  1. TARGET ANTIBIOTIC ORIGINAL TARGET ??? [Suspect]
     Dosage: DIME SIZED ONCE CUTANEOUS
     Route: 003
     Dates: start: 20040320, end: 20040320

REACTIONS (6)
  - APPLICATION SITE BURNING [None]
  - BURNS SECOND DEGREE [None]
  - CAUSTIC INJURY [None]
  - ERYTHEMA [None]
  - SCAR [None]
  - SWELLING FACE [None]
